FAERS Safety Report 8152347-3 (Version None)
Quarter: 2012Q1

REPORT INFORMATION
  Report Type: 
  Country: None (occurrence: None)
  Receive Date: 20120221
  Receipt Date: 20120208
  Transmission Date: 20120608
  Serious: Yes (Hospitalization, Other)
  Sender: FDA-Public Use
  Company Number: US-JNJFOC-20120205518

PATIENT
  Sex: Female
  Weight: 75.3 kg

DRUGS (7)
  1. LIALDA [Concomitant]
     Indication: CROHN'S DISEASE
     Route: 048
     Dates: start: 20070101, end: 20110201
  2. LOMOTIL [Concomitant]
     Indication: DIARRHOEA
     Dosage: STRENGTH: 25 MG
     Route: 048
     Dates: start: 20070101
  3. ALLEGRA [Concomitant]
     Indication: HYPERSENSITIVITY
     Route: 048
     Dates: start: 20100101
  4. VALTREX [Concomitant]
     Indication: HERPES VIRUS INFECTION
     Route: 048
     Dates: start: 20090101
  5. LIALDA [Concomitant]
     Indication: COLITIS ULCERATIVE
     Route: 048
     Dates: start: 20070101, end: 20110201
  6. REMICADE [Suspect]
     Indication: CROHN'S DISEASE
     Dosage: ONCE EVRY 6 OR 8 WEEKS
     Route: 042
     Dates: start: 20100331, end: 20110413
  7. REMICADE [Suspect]
     Indication: COLITIS ULCERATIVE
     Dosage: ONCE EVRY 6 OR 8 WEEKS
     Route: 042
     Dates: start: 20100331, end: 20110413

REACTIONS (18)
  - NAUSEA [None]
  - SENSORY LOSS [None]
  - RASH PRURITIC [None]
  - DRUG INEFFECTIVE [None]
  - ABNORMAL LOSS OF WEIGHT [None]
  - CHILLS [None]
  - CENTRAL NERVOUS SYSTEM LESION [None]
  - HYPERSENSITIVITY [None]
  - PYREXIA [None]
  - BEDRIDDEN [None]
  - BARTHOLIN'S CYST [None]
  - IMPAIRED HEALING [None]
  - HAEMATOCHEZIA [None]
  - FEELING ABNORMAL [None]
  - FISTULA [None]
  - NEUROPATHY PERIPHERAL [None]
  - ABDOMINAL PAIN UPPER [None]
  - ALOPECIA UNIVERSALIS [None]
